FAERS Safety Report 5456535-6 (Version None)
Quarter: 2007Q3

REPORT INFORMATION
  Report Type: 
  Country: None (occurrence: None)
  Receive Date: 20070918
  Receipt Date: 20070911
  Transmission Date: 20080115
  Serious: Yes (Other)
  Sender: FDA-Public Use
  Company Number: A0680926A

PATIENT
  Age: 51 Year
  Sex: Female

DRUGS (25)
  1. FLONASE [Suspect]
     Dosage: 1PUFF PER DAY
     Route: 045
     Dates: start: 19950101
  2. FLOVENT [Suspect]
     Indication: MULTIPLE ALLERGIES
     Dosage: 2PUFF PER DAY
     Route: 055
     Dates: start: 19950101
  3. FLUTICASONE PROPIONATE [Suspect]
     Dosage: 1PUFF PER DAY
     Route: 045
  4. UNSPECIFIED MEDICATION [Concomitant]
  5. ENABLEX [Concomitant]
  6. FLOMAX [Concomitant]
  7. CARBATROL [Concomitant]
  8. COQ10 [Concomitant]
  9. VIVELLE [Concomitant]
  10. FOLIC ACID [Concomitant]
  11. CALCIUM [Concomitant]
  12. NORETHINDRONE [Concomitant]
  13. PRILOSEC [Concomitant]
  14. MULTI-VITAMIN [Concomitant]
  15. METAMUCIL [Concomitant]
  16. FOSAMAX [Concomitant]
  17. ACYCLOVIR [Concomitant]
  18. ZOVIRAX [Concomitant]
  19. OINTMENT [Concomitant]
  20. CLINDAMYCIN HCL [Concomitant]
  21. ECHINACEA [Concomitant]
  22. TYLENOL (CAPLET) [Concomitant]
  23. ASPIRIN [Concomitant]
  24. IBUPROFEN [Concomitant]
  25. TUMS [Concomitant]

REACTIONS (1)
  - MULTIPLE SCLEROSIS [None]
